FAERS Safety Report 18718108 (Version 3)
Quarter: 2021Q1

REPORT INFORMATION
  Report Type: Report from Study
  Country: US (occurrence: US)
  Receive Date: 20210108
  Receipt Date: 20210305
  Transmission Date: 20210419
  Serious: Yes (Hospitalization, Other)
  Sender: FDA-Public Use
  Company Number: US-GILEAD-2021-0511798

PATIENT
  Age: 56 Year
  Sex: Female

DRUGS (44)
  1. BETHKIS [Concomitant]
     Active Substance: TOBRAMYCIN
  2. MELATONIN [Concomitant]
     Active Substance: MELATONIN
  3. ALPRAZOLAM. [Concomitant]
     Active Substance: ALPRAZOLAM
  4. CRESEMBA [Concomitant]
     Active Substance: ISAVUCONAZONIUM SULFATE
  5. ADVAIR HFA [Concomitant]
     Active Substance: FLUTICASONE PROPIONATE\SALMETEROL XINAFOATE
  6. BENZONATATE. [Concomitant]
     Active Substance: BENZONATATE
  7. FAMOTIDINE. [Concomitant]
     Active Substance: FAMOTIDINE
  8. PROMETHAZINE [Concomitant]
     Active Substance: PROMETHAZINE HYDROCHLORIDE
  9. TOPIRAMATE. [Concomitant]
     Active Substance: TOPIRAMATE
  10. CALCIUM CITRATE + D3 [Concomitant]
  11. CARAFATE [Concomitant]
     Active Substance: SUCRALFATE
  12. ELIQUIS [Concomitant]
     Active Substance: APIXABAN
  13. LORATADINE. [Concomitant]
     Active Substance: LORATADINE
  14. PANTOPRAZOLE [Concomitant]
     Active Substance: PANTOPRAZOLE
  15. ENSURE [NUTRIENTS NOS] [Concomitant]
  16. D?3 [Concomitant]
     Active Substance: CHOLECALCIFEROL
  17. AZTREONAM LYSINE [Suspect]
     Active Substance: AZTREONAM LYSINE
     Indication: CYSTIC FIBROSIS LUNG
     Dosage: 75 MG, TID, QOM
     Route: 055
     Dates: start: 20131227
  18. APAP/CODEINE [CODEINE PHOSPHATE;PARACETAMOL] [Concomitant]
  19. KALYDECO [Concomitant]
     Active Substance: IVACAFTOR
  20. TRAMADOL HCL [Concomitant]
     Active Substance: TRAMADOL HYDROCHLORIDE
  21. URSODIOL. [Concomitant]
     Active Substance: URSODIOL
  22. VITAMIN D3 [Concomitant]
     Active Substance: CHOLECALCIFEROL
  23. MIRALAX [Concomitant]
     Active Substance: POLYETHYLENE GLYCOL 3350
  24. CYCLOBENZAPRINE. [Concomitant]
     Active Substance: CYCLOBENZAPRINE
  25. SERTRALINE [Concomitant]
     Active Substance: SERTRALINE HYDROCHLORIDE
  26. AZITHROMYCIN ANHYDROUS. [Concomitant]
     Active Substance: AZITHROMYCIN ANHYDROUS
  27. BENTYL [Concomitant]
     Active Substance: DICYCLOMINE HYDROCHLORIDE
  28. LEVAQUIN [Concomitant]
     Active Substance: LEVOFLOXACIN
  29. MUCINEX [Concomitant]
     Active Substance: GUAIFENESIN
  30. SALINE [BORIC ACID] [Concomitant]
  31. SEROQUEL [Concomitant]
     Active Substance: QUETIAPINE FUMARATE
  32. ZOLOFT [Concomitant]
     Active Substance: SERTRALINE HYDROCHLORIDE
  33. GUAIFENESIN. [Concomitant]
     Active Substance: GUAIFENESIN
  34. PANCREAZE [Concomitant]
     Active Substance: PANCRELIPASE AMYLASE\PANCRELIPASE LIPASE\PANCRELIPASE PROTEASE
  35. N?ACETYL?L?CYSTEINE [Concomitant]
     Active Substance: ACETYLCYSTEINE
  36. AZTREONAM LYSINE [Suspect]
     Active Substance: AZTREONAM LYSINE
     Indication: PSEUDOMONAS INFECTION
  37. FLONASE [Concomitant]
     Active Substance: FLUTICASONE PROPIONATE
  38. SODIUM CHLORIDE. [Concomitant]
     Active Substance: SODIUM CHLORIDE
  39. TOPAMAX [Concomitant]
     Active Substance: TOPIRAMATE
  40. XIFAXAN [Concomitant]
     Active Substance: RIFAXIMIN
  41. METAXALONE. [Concomitant]
     Active Substance: METAXALONE
  42. CYANOCOBALAMIN. [Concomitant]
     Active Substance: CYANOCOBALAMIN
  43. LEVALBUTEROL [LEVOSALBUTAMOL] [Concomitant]
     Active Substance: LEVALBUTEROL
  44. NYSTATIN. [Concomitant]
     Active Substance: NYSTATIN

REACTIONS (3)
  - Pneumonia [Unknown]
  - Cystic fibrosis [Unknown]
  - Intentional dose omission [Recovered/Resolved]

NARRATIVE: CASE EVENT DATE: 20201201
